FAERS Safety Report 13209985 (Version 1)
Quarter: 2017Q1

REPORT INFORMATION
  Report Type: Spontaneous
  Country: CA (occurrence: CA)
  Receive Date: 20170209
  Receipt Date: 20170209
  Transmission Date: 20170428
  Serious: Yes (Other)
  Sender: FDA-Public Use
  Company Number: None

PATIENT
  Sex: Female

DRUGS (1)
  1. ICG (INDOCYANINE GREEN) [Suspect]
     Active Substance: INDOCYANINE GREEN

REACTIONS (2)
  - Anaphylactic reaction [None]
  - Contrast media reaction [None]

NARRATIVE: CASE EVENT DATE: 20170105
